FAERS Safety Report 18369545 (Version 8)
Quarter: 2021Q3

REPORT INFORMATION
  Report Type: Spontaneous
  Country: US (occurrence: US)
  Receive Date: 20201012
  Receipt Date: 20210810
  Transmission Date: 20211014
  Serious: Yes (Other)
  Sender: FDA-Public Use
  Company Number: US-AMGEN-USASP2020161404

PATIENT
  Sex: Female

DRUGS (1)
  1. PROLIA [Suspect]
     Active Substance: DENOSUMAB
     Indication: OSTEOPOROSIS
     Dosage: UNK
     Route: 065

REACTIONS (9)
  - Fall [Unknown]
  - Unevaluable event [Unknown]
  - Gait disturbance [Unknown]
  - Pain [Unknown]
  - Dyspnoea [Unknown]
  - Hysterectomy [Unknown]
  - Bone erosion [Unknown]
  - Large intestinal ulcer [Unknown]
  - Fibromyalgia [Unknown]
